FAERS Safety Report 11171813 (Version 1)
Quarter: 2015Q2

REPORT INFORMATION
  Report Type: Spontaneous
  Country: JP (occurrence: JP)
  Receive Date: 20150608
  Receipt Date: 20150608
  Transmission Date: 20150821
  Serious: Yes (Life-Threatening, Congenital Anomaly)
  Sender: FDA-Public Use
  Company Number: JP-BANPHARM-20153943

PATIENT
  Age: 2 Month
  Sex: Male

DRUGS (1)
  1. VALPROIC ACID UNKNOWN PRODUCT [Suspect]
     Active Substance: VALPROIC ACID
     Route: 015

REACTIONS (3)
  - Laryngeal web [Recovered/Resolved]
  - Tracheal stenosis [Recovered/Resolved]
  - Foetal anticonvulsant syndrome [Unknown]
